FAERS Safety Report 22918383 (Version 3)
Quarter: 2023Q4

REPORT INFORMATION
  Report Type: Other
  Country: US (occurrence: US)
  Receive Date: 20230907
  Receipt Date: 20231115
  Transmission Date: 20240110
  Serious: No
  Sender: FDA-Public Use
  Company Number: US-TRAVERE-2023TVT00272

PATIENT
  Age: 56 Year
  Sex: Female

DRUGS (3)
  1. FILSPARI [Suspect]
     Active Substance: SPARSENTAN
     Indication: Chronic kidney disease
     Route: 048
     Dates: start: 20230613
  2. FILSPARI [Suspect]
     Active Substance: SPARSENTAN
     Indication: IgA nephropathy
     Route: 048
  3. TARPEYO [Suspect]
     Active Substance: BUDESONIDE

REACTIONS (8)
  - Peripheral swelling [Not Recovered/Not Resolved]
  - Swelling face [None]
  - Tongue oedema [Unknown]
  - Insomnia [Unknown]
  - Swelling [None]
  - Headache [Unknown]
  - Tachycardia [Unknown]
  - Feeling abnormal [Unknown]
